FAERS Safety Report 16994378 (Version 1)
Quarter: 2019Q4

REPORT INFORMATION
  Report Type: Spontaneous
  Country: DE (occurrence: DE)
  Receive Date: 20191105
  Receipt Date: 20191105
  Transmission Date: 20200122
  Serious: Yes (Other)
  Sender: FDA-Public Use
  Company Number: DE-ASTRAZENECA-2019SF55372

PATIENT
  Sex: Female

DRUGS (1)
  1. SYMBICORT [Suspect]
     Active Substance: BUDESONIDE\FORMOTEROL FUMARATE DIHYDRATE
     Dosage: 320 / 9 UG WITH 60 SINGLE DOSAGES, UNKNOWN UNKNOWN
     Route: 055

REACTIONS (2)
  - Total lung capacity decreased [Unknown]
  - Device malfunction [Unknown]
